FAERS Safety Report 7941187-3 (Version None)
Quarter: 2011Q4

REPORT INFORMATION
  Report Type: 
  Country: None (occurrence: None)
  Receive Date: 20111128
  Receipt Date: 20111117
  Transmission Date: 20120403
  Serious: Yes (Hospitalization)
  Sender: FDA-Public Use
  Company Number: US-US-EMD SERONO, INC.-7076018

PATIENT
  Sex: Female
  Weight: 78 kg

DRUGS (13)
  1. CYTARABINE [Suspect]
     Indication: ACUTE MYELOID LEUKAEMIA
     Route: 042
     Dates: start: 20110629, end: 20110703
  2. DAPSONE [Concomitant]
     Dates: start: 20110630
  3. FLUCONAZOLE [Concomitant]
     Dates: start: 20110629, end: 20110925
  4. CARVEDILOL [Concomitant]
  5. NOVANTRONE [Suspect]
     Dates: start: 20110830
  6. ACYCLOVIR [Concomitant]
     Dates: start: 20110310
  7. POSACONAZOLE [Concomitant]
     Dates: end: 20110708
  8. PREDNISONE TAB [Concomitant]
  9. NOVANTRONE [Suspect]
     Indication: ACUTE MYELOID LEUKAEMIA
     Dates: start: 20110629, end: 20110703
  10. MDX-1338 [Suspect]
     Indication: ACUTE MYELOID LEUKAEMIA
     Route: 042
     Dates: start: 20110629, end: 20110629
  11. LEVAQUIN [Concomitant]
     Dates: start: 20110310, end: 20110708
  12. LEVOFLOXACIN [Concomitant]
     Dates: end: 20111028
  13. ETOPOSIDE [Suspect]
     Indication: ACUTE MYELOID LEUKAEMIA
     Route: 042
     Dates: start: 20110629, end: 20110703

REACTIONS (5)
  - SYNCOPE [None]
  - FUNGAL INFECTION [None]
  - FEBRILE NEUTROPENIA [None]
  - MUCOSAL INFLAMMATION [None]
  - PNEUMONIA FUNGAL [None]
